FAERS Safety Report 5969097-1 (Version None)
Quarter: 2008Q4

REPORT INFORMATION
  Report Type: 
  Country: None (occurrence: None)
  Receive Date: 20081126
  Receipt Date: 20080828
  Transmission Date: 20090506
  Serious: No
  Sender: FDA-Public Use
  Company Number: US-ABBOTT-08P-163-0470977-00

PATIENT
  Sex: Female
  Weight: 100.79 kg

DRUGS (13)
  1. SIMCOR [Suspect]
     Indication: BLOOD CHOLESTEROL INCREASED
     Dosage: 500MG/20MG Q HS
     Route: 048
     Dates: start: 20080301, end: 20080601
  2. SIMCOR [Suspect]
     Dosage: 1000MG/40MG Q HS
     Dates: start: 20080601
  3. LEVOTHYROXINE SODIUM [Concomitant]
     Indication: DRUG USE FOR UNKNOWN INDICATION
     Route: 048
     Dates: start: 19810101
  4. PRINOVIL [Concomitant]
     Indication: DRUG USE FOR UNKNOWN INDICATION
     Route: 048
  5. CLONAZEPAM [Concomitant]
     Indication: DRUG USE FOR UNKNOWN INDICATION
     Route: 048
  6. TYLOX [Concomitant]
     Indication: DRUG USE FOR UNKNOWN INDICATION
     Route: 048
  7. ALBUTEROL SULFATE [Concomitant]
     Indication: DRUG USE FOR UNKNOWN INDICATION
  8. DONATOL [Concomitant]
     Indication: DRUG USE FOR UNKNOWN INDICATION
  9. ESTROTEST [Concomitant]
     Indication: DRUG USE FOR UNKNOWN INDICATION
     Dosage: FULL STRENGHT
  10. OMEPRAZOLE MAGNESIUM [Concomitant]
     Indication: DRUG USE FOR UNKNOWN INDICATION
     Dosage: 1 AT BEDTIME
  11. DULOXETINE HYDROCHLORIDE [Concomitant]
     Indication: DRUG USE FOR UNKNOWN INDICATION
  12. ZOLPIDEM TARTRATE [Concomitant]
     Indication: DRUG USE FOR UNKNOWN INDICATION
  13. LIBREX [Concomitant]
     Indication: DRUG USE FOR UNKNOWN INDICATION

REACTIONS (4)
  - CONJUNCTIVITIS INFECTIVE [None]
  - FLUSHING [None]
  - HEADACHE [None]
  - MUSCLE TIGHTNESS [None]
